FAERS Safety Report 14233731 (Version 12)
Quarter: 2018Q3

REPORT INFORMATION
  Report Type: Report from Study
  Country: GB (occurrence: GB)
  Receive Date: 20171129
  Receipt Date: 20180829
  Transmission Date: 20181010
  Serious: Yes (Hospitalization, Other)
  Sender: FDA-Public Use
  Company Number: GB-ASPEN-GLO2017GB007741

PATIENT
  Age: 82 Year
  Sex: Female

DRUGS (52)
  1. DEXAMETHASONE. [Suspect]
     Active Substance: DEXAMETHASONE
     Dosage: 8 MG, CYCLICAL (DAYS 1, 2, 8, 9, 15, 16, 22 AND 23 OF EACH 35?DAY CYCLE FOR CYCLES 9 AND BEYOND);
     Route: 048
  2. VENETOCLAX. [Suspect]
     Active Substance: VENETOCLAX
     Dosage: 1 DF, QD
     Route: 048
     Dates: start: 20170331, end: 20170607
  3. VENETOCLAX. [Suspect]
     Active Substance: VENETOCLAX
     Dosage: 1 DF, QD
     Route: 048
     Dates: start: 20170630, end: 20171026
  4. VELCADE [Suspect]
     Active Substance: BORTEZOMIB
     Dosage: UNK, CYCLICAL (DAYS 1, 8, 15 AND 22 OF EACH 35?DAY CYCLE FOR CYCLES 9 AND BEYOND);
     Route: 058
  5. AMLODIPINE BESILATE [Concomitant]
     Active Substance: AMLODIPINE BESYLATE
     Indication: HYPERTENSION
     Dosage: 10 MG, QD
     Route: 048
     Dates: start: 20161102
  6. LOPERAMIDE [Concomitant]
     Active Substance: LOPERAMIDE
     Indication: DIARRHOEA
     Dosage: 2 MG, PRN
     Route: 048
     Dates: start: 20170512
  7. LANSOPRAZOLE. [Concomitant]
     Active Substance: LANSOPRAZOLE
     Indication: HIATUS HERNIA
     Dosage: 30 MG, BID
     Route: 048
     Dates: start: 20130815
  8. LEKOVIT CA [Concomitant]
     Active Substance: CALCIUM CARBONATE\CHOLECALCIFEROL
     Indication: PROPHYLAXIS
     Dosage: 1 DF, QD
     Route: 048
     Dates: start: 20101202
  9. DOXAZOSIN [Concomitant]
     Active Substance: DOXAZOSIN\DOXAZOSIN MESYLATE
     Indication: HYPERTENSION
     Dosage: 4 MG, BID
     Route: 048
     Dates: start: 20080211
  10. VELCADE [Suspect]
     Active Substance: BORTEZOMIB
     Dosage: 1.3 MG/M2 CYCLICAL (DAYS 1, 8, 15 AND 22 OF EACH 35?DAY CYCLE FOR CYCLES 9 AND BEYOND);
     Route: 058
  11. VELCADE [Suspect]
     Active Substance: BORTEZOMIB
     Dosage: 1.15 MG/M2, CYCLICAL (DAYS 1,4, 8, 15 AND 22 OF EACH 35?DAY CYCLE FOR CYCLES 9 AND BEYOND);
     Route: 058
  12. VELCADE [Suspect]
     Active Substance: BORTEZOMIB
     Dosage: 1.8 MG/M2 CYCLICAL (DAYS 1, 8, 15 AND 22 OF EACH 35?DAY CYCLE FOR CYCLES 9 AND BEYOND);
     Route: 058
  13. VELCADE [Suspect]
     Active Substance: BORTEZOMIB
     Dosage: 1.15 MG/M2. DAYS 1, 4, 8, AND 11 OF EACH 21 DAY CYCLE FOR CYCLES 1?8
     Route: 058
  14. VELCADE [Suspect]
     Active Substance: BORTEZOMIB
     Dosage: 2.3 MG/M2 DAYS 1, 4, 8, AND 11 OF EACH 21 DAY CYCLE FOR CYCLES 1?8
     Route: 058
  15. PAMIDRONATE [Concomitant]
     Active Substance: PAMIDRONATE DISODIUM
     Indication: BONE DISORDER
     Dosage: 30 MG, QD
     Route: 042
     Dates: start: 20170728
  16. PAMIDRONATE [Concomitant]
     Active Substance: PAMIDRONATE DISODIUM
     Indication: HEADACHE
     Dosage: 32 MG, QD
     Route: 042
     Dates: start: 20170729
  17. DEXAMETHASONE. [Suspect]
     Active Substance: DEXAMETHASONE
     Dosage: 12 MG CYCLICAL (DAYS 1, 2, 4, 5, 8, 9, 11 AND 12 OF EACH 21?DAY CYCLE FOR CYCLES 1?8)
     Route: 048
     Dates: start: 20170407, end: 20170429
  18. VENETOCLAX. [Suspect]
     Active Substance: VENETOCLAX
     Dosage: 1 DF, QD
     Route: 048
     Dates: start: 20171110
  19. VELCADE [Suspect]
     Active Substance: BORTEZOMIB
     Dosage: UNK CYCLICAL (DAYS 1, 8, 15 AND 22 OF EACH 35?DAY CYCLE FOR CYCLES 9 AND BEYOND);
     Route: 058
  20. ASPIRIN. [Concomitant]
     Active Substance: ASPIRIN
     Indication: THROMBOSIS PROPHYLAXIS
     Dosage: 75 MG, QD
     Route: 048
     Dates: start: 20150529
  21. OSELTAMIVIR PHOSPHATE. [Concomitant]
     Active Substance: OSELTAMIVIR PHOSPHATE
     Indication: INFLUENZA
     Dosage: 75 MG, BID
     Route: 048
     Dates: start: 20170330
  22. GABAPENTIN. [Concomitant]
     Active Substance: GABAPENTIN
     Indication: BURSITIS
     Dosage: 300 MG, TID
     Route: 048
     Dates: start: 20161117
  23. COCODAMOL [Concomitant]
     Active Substance: ACETAMINOPHEN\CODEINE PHOSPHATE
     Indication: HEADACHE
     Dosage: 32 MG, QD
     Route: 048
     Dates: start: 20170729
  24. DEXAMETHASONE. [Suspect]
     Active Substance: DEXAMETHASONE
     Indication: PLASMA CELL MYELOMA
     Dosage: 8 MG, CYCLICAL (DAYS 1, 2, 4, 5, 8, 9, 11 AND 12 OF EACH 21?DAY CYCLE FOR CYCLES 1?8);
     Route: 048
  25. DEXAMETHASONE. [Suspect]
     Active Substance: DEXAMETHASONE
     Dosage: 12 MG CYCLICAL (DAYS 1, 2, 4, 5, 8, 9, 11 AND 12 OF
     Route: 048
     Dates: start: 20170217, end: 20170228
  26. DEXAMETHASONE. [Suspect]
     Active Substance: DEXAMETHASONE
     Dosage: 20 MG
     Route: 048
  27. DEXAMETHASONE. [Suspect]
     Active Substance: DEXAMETHASONE
     Dosage: 12 MG
     Route: 048
  28. VENETOCLAX. [Suspect]
     Active Substance: VENETOCLAX
     Dosage: 1 DF, QD
     Route: 048
     Dates: start: 20170211, end: 20170309
  29. PANADEINE CO [Concomitant]
     Active Substance: ACETAMINOPHEN\CODEINE PHOSPHATE
     Indication: HEADACHE
     Dosage: 8 MG, QID
     Route: 048
  30. ASPIRIN. [Concomitant]
     Active Substance: ASPIRIN
     Indication: PROPHYLAXIS
  31. FUROSEMIDE. [Concomitant]
     Active Substance: FUROSEMIDE
     Indication: OEDEMA PERIPHERAL
     Dosage: 40 MG, QD
     Route: 048
     Dates: start: 20170208
  32. EPOETIN [Concomitant]
     Active Substance: ERYTHROPOIETIN
     Dosage: 12000 DF
     Route: 058
     Dates: start: 20161118
  33. VELCADE [Suspect]
     Active Substance: BORTEZOMIB
     Indication: PLASMA CELL MYELOMA
     Dosage: UNKNOWN, CYCLICAL (DAYS 1, 8, 15 AND 22 OF EACH 35?DAY CYCLE FOR CYCLES 9 AND BEYOND);
     Route: 058
  34. DOXAZOSIN [Concomitant]
     Active Substance: DOXAZOSIN\DOXAZOSIN MESYLATE
     Indication: ORTHOSTATIC HYPOTENSION
  35. ACETAMINOPHEN W/CODEINE PHOSPHATE [Concomitant]
     Active Substance: ACETAMINOPHEN\CODEINE PHOSPHATE
     Indication: HEADACHE
     Dosage: 32 MG, QD
     Route: 048
     Dates: start: 20170729
  36. DEXAMETHASONE. [Suspect]
     Active Substance: DEXAMETHASONE
     Dosage: 8 MG CYCLICAL (DAYS 1, 2, 4, 5, 8, 9, 11 AND 12 OF EACH 21?DAY CYCLE FOR CYCLES 1?8)
     Route: 048
     Dates: start: 20170512, end: 20170613
  37. DEXAMETHASONE. [Suspect]
     Active Substance: DEXAMETHASONE
     Dosage: 4 MG, CYCLICAL (DAYS 1, 2, 8, 9, 15, 16, 22 AND 23 OF EACH 35?DAY CYCLE FOR CYCLES 9 AND BEYOND);
     Route: 048
  38. POTASSIUM [Concomitant]
     Active Substance: POTASSIUM
     Indication: BLOOD POTASSIUM DECREASED
     Dosage: UNK
     Route: 048
  39. PARACETAMOL [Concomitant]
     Active Substance: ACETAMINOPHEN
     Indication: HEADACHE
     Dosage: 500 MG, QD
     Route: 048
     Dates: start: 20170729
  40. DEXAMETHASONE. [Suspect]
     Active Substance: DEXAMETHASONE
     Dosage: 12 MG, CYCLICAL (DAYS 1, 2, 4, 5, 8, 9, 11 AND 12 OF EACH 21?DAY CYCLE FOR CYCLES 1?8)
     Route: 048
  41. VELCADE [Suspect]
     Active Substance: BORTEZOMIB
     Dosage: 2.3 MG/M2, CYCLICAL (DAYS 1, 8, 15 AND 22 OF EACH 35?DAY CYCLE FOR CYCLES 9 AND BEYOND);
     Route: 058
  42. VELCADE [Suspect]
     Active Substance: BORTEZOMIB
     Dosage: 1.3 MG/M2, CYCLICAL (DAYS 1, 8, 15 AND 22 OF EACH 35?DAY CYCLE FOR CYCLES 9 AND BEYOND);
     Route: 058
  43. VELCADE [Suspect]
     Active Substance: BORTEZOMIB
     Dosage: 1.8 MG/M2 DAYS 1, 4, 8, AND 11 OF EACH 21 DAY CYCLE FOR CYCLES 1?8
     Route: 058
  44. ERYTHROPOIETIN [Concomitant]
     Active Substance: ERYTHROPOIETIN
     Indication: ANAEMIA
     Dosage: 12000 U, WEEKLY
     Route: 058
     Dates: start: 20161118
  45. ERYTHROPOIETIN [Concomitant]
     Active Substance: ERYTHROPOIETIN
     Dosage: 30000 U, WEEKLY
     Route: 058
     Dates: start: 20160901, end: 20161117
  46. DOMPERIDONE MALEATE [Concomitant]
     Active Substance: DOMPERIDONE MALEATE
     Indication: NAUSEA
     Dosage: 10 MG, TID
     Route: 048
     Dates: start: 20170109, end: 20170223
  47. FUROSEMIDE. [Concomitant]
     Active Substance: FUROSEMIDE
     Dosage: 40 MG, BID
     Route: 048
     Dates: start: 201702, end: 20170207
  48. OXYBUTYNIN. [Concomitant]
     Active Substance: OXYBUTYNIN CHLORIDE
     Indication: INCONTINENCE
     Dosage: 2.5 MG, BID
     Route: 048
     Dates: start: 20160602
  49. DEXAMETHASONE. [Suspect]
     Active Substance: DEXAMETHASONE
     Dosage: 20 MG ON DAYS 1, 2, 8, 9, 15, 16, 22 AND 23 OF EACH 35?DAY CYCLE
     Route: 048
     Dates: start: 20170106, end: 20170117
  50. VENETOCLAX. [Suspect]
     Active Substance: VENETOCLAX
     Indication: PLASMA CELL MYELOMA
     Dosage: 1 DF, QD
     Route: 048
     Dates: start: 20170106, end: 20170124
  51. DOMPERIDONE MALEATE [Concomitant]
     Active Substance: DOMPERIDONE MALEATE
     Indication: PROPHYLAXIS OF NAUSEA AND VOMITING
     Dosage: 10 MG, QD
     Route: 048
     Dates: start: 20170224
  52. EPOETIN [Concomitant]
     Active Substance: ERYTHROPOIETIN
     Indication: ANAEMIA
     Dosage: 30000 DF, WEEKLY
     Route: 058
     Dates: start: 20160901, end: 20161117

REACTIONS (4)
  - Lung infection [Recovered/Resolved]
  - Lower respiratory tract infection [Recovered/Resolved]
  - Infection [Recovered/Resolved]
  - Anaemia [Recovered/Resolved]

NARRATIVE: CASE EVENT DATE: 20171026
